FAERS Safety Report 16281391 (Version 2)
Quarter: 2019Q2

REPORT INFORMATION
  Report Type: Report from Study
  Country: DE (occurrence: DE)
  Receive Date: 20190507
  Receipt Date: 20190524
  Transmission Date: 20190711
  Serious: Yes (Hospitalization)
  Sender: FDA-Public Use
  Company Number: DE-ROCHE-2310106

PATIENT
  Age: 42 Year
  Sex: Female
  Weight: 56 kg

DRUGS (4)
  1. TRASTUZUMAB. [Suspect]
     Active Substance: TRASTUZUMAB
     Indication: HER-2 POSITIVE BREAST CANCER
     Dosage: ON 07/MAR/2019, RECEIVED MOST RECENT DOSE OF TRASTUZUMAB.
     Route: 042
     Dates: start: 20181004
  2. PACLITAXEL. [Suspect]
     Active Substance: PACLITAXEL
     Indication: HER-2 POSITIVE BREAST CANCER
     Dosage: ON 07/MAR/2019, RECEIVED MOST RECENT DOSE OF PACLITAXEL.
     Route: 042
     Dates: start: 20190221
  3. TAMOXIFEN [Suspect]
     Active Substance: TAMOXIFEN
     Indication: HER-2 POSITIVE BREAST CANCER
     Dosage: ON 23/MAR/2019, RECEIVED MOST RECENT DOSE OF TAMOXIFEN.
     Route: 048
     Dates: start: 20181004
  4. PERTUZUMAB. [Suspect]
     Active Substance: PERTUZUMAB
     Indication: HER-2 POSITIVE BREAST CANCER
     Dosage: ON 07/MAR/2019, RECEIVED MOST RECENT DOSE OF PERTUZUMAB.
     Route: 042
     Dates: start: 20181004

REACTIONS (1)
  - General physical health deterioration [Recovered/Resolved]

NARRATIVE: CASE EVENT DATE: 20190323
